FAERS Safety Report 24260304 (Version 4)
Quarter: 2025Q2

REPORT INFORMATION
  Report Type: Report from Study
  Country: US (occurrence: US)
  Receive Date: 20240828
  Receipt Date: 20250527
  Transmission Date: 20250716
  Serious: No
  Sender: SUNOVION
  Company Number: US-SUMITOMO PHARMA SWITZERLAND GMBH-2024SPA000260

PATIENT

DRUGS (1)
  1. ORGOVYX [Suspect]
     Active Substance: RELUGOLIX
     Indication: Prostate cancer
     Dosage: 120 MG, QD
     Route: 048
     Dates: start: 20240314

REACTIONS (12)
  - Trismus [Unknown]
  - Bladder pain [Unknown]
  - Pollakiuria [Unknown]
  - Hypersensitivity [Unknown]
  - Bowel movement irregularity [Unknown]
  - Procedural haemorrhage [Unknown]
  - Defaecation urgency [Unknown]
  - Fatigue [Unknown]
  - Hot flush [Unknown]
  - Back pain [Unknown]
  - Incorrect dose administered [Unknown]
  - Product dose omission in error [Unknown]
